FAERS Safety Report 7046014-7 (Version None)
Quarter: 2010Q4

REPORT INFORMATION
  Report Type: 
  Country: None (occurrence: None)
  Receive Date: 20101014
  Receipt Date: 20101006
  Transmission Date: 20110411
  Serious: No
  Sender: FDA-Public Use
  Company Number: US-B.I. PHARMACEUTICALS,INC./RIDGEFIELD-2010-BP-10339BP

PATIENT
  Age: 76 Year
  Sex: Female

DRUGS (7)
  1. AGGRENOX [Suspect]
     Indication: TRANSIENT ISCHAEMIC ATTACK
     Route: 048
     Dates: start: 20100902, end: 20100904
  2. SIMVASTATIN [Concomitant]
     Indication: BLOOD CHOLESTEROL INCREASED
  3. ASPIRIN [Concomitant]
     Indication: CARDIAC DISORDER
  4. PRAVASTATIN [Concomitant]
     Dosage: 40 MG
  5. CITALOPRAM HYDROBROMIDE [Concomitant]
     Dosage: 10 MG
  6. ELMA ASPIRIN [Concomitant]
  7. VITAMIN FOR OVER 50 [Concomitant]

REACTIONS (3)
  - BLOOD PRESSURE INCREASED [None]
  - HEADACHE [None]
  - NAUSEA [None]
